FAERS Safety Report 15477734 (Version 2)
Quarter: 2018Q4

REPORT INFORMATION
  Report Type: Spontaneous
  Country: US (occurrence: US)
  Receive Date: 20181009
  Receipt Date: 20181119
  Transmission Date: 20190205
  Serious: Yes (Death, Hospitalization)
  Sender: FDA-Public Use
  Company Number: US-US WORLDMEDS, LLC-USW201809-001417

PATIENT
  Age: 78 Year
  Sex: Male
  Weight: 104.32 kg

DRUGS (12)
  1. ARICEPT [Concomitant]
     Active Substance: DONEPEZIL HYDROCHLORIDE
     Dates: start: 20180226
  2. DESYREL [Concomitant]
     Active Substance: TRAZODONE HYDROCHLORIDE
     Dates: start: 20171201
  3. PARCOPA [Concomitant]
     Active Substance: CARBIDOPA\LEVODOPA
     Dates: start: 20171030
  4. COMTAN [Concomitant]
     Active Substance: ENTACAPONE
     Dates: start: 20180716
  5. VITAMIN D [Concomitant]
     Active Substance: CHOLECALCIFEROL
     Dates: start: 20180402
  6. BUMEX [Concomitant]
     Active Substance: BUMETANIDE
     Dates: start: 20171201
  7. LOTRISONE [Concomitant]
     Active Substance: BETAMETHASONE DIPROPIONATE\CLOTRIMAZOLE
     Route: 061
     Dates: start: 20180301
  8. REMERON [Concomitant]
     Active Substance: MIRTAZAPINE
     Dates: start: 20180219
  9. APOKYN [Suspect]
     Active Substance: APOMORPHINE HYDROCHLORIDE
     Indication: PARKINSONISM
     Route: 058
     Dates: start: 20040902, end: 20180920
  10. VITAMIN D3 [Concomitant]
     Active Substance: CHOLECALCIFEROL
  11. EFFEXOR XR [Concomitant]
     Active Substance: VENLAFAXINE HYDROCHLORIDE
     Dates: start: 20171201
  12. ATROPINE 1 % OPHTHALMIC SOLUTION [Concomitant]
     Dates: start: 20180604

REACTIONS (5)
  - Fall [Unknown]
  - Cardio-respiratory arrest [Fatal]
  - Unresponsive to stimuli [Unknown]
  - Mental status changes [Unknown]
  - Ventricular fibrillation [Unknown]

NARRATIVE: CASE EVENT DATE: 20180920
